FAERS Safety Report 5520823-5 (Version None)
Quarter: 2007Q4

REPORT INFORMATION
  Report Type: 
  Country: None (occurrence: None)
  Receive Date: 20071116
  Receipt Date: 20071116
  Transmission Date: 20080405
  Serious: Yes (Hospitalization)
  Sender: FDA-Public Use
  Company Number: None

PATIENT
  Sex: Female
  Weight: 108.8633 kg

DRUGS (10)
  1. GEMZAR [Suspect]
     Indication: BREAST CANCER METASTATIC
     Dosage: 2160MG D1, D8 EVERY 3 WKS IV DRIP
     Route: 041
     Dates: start: 20070919, end: 20071024
  2. CISPLATIN [Suspect]
     Indication: BREAST CANCER METASTATIC
     Dosage: 65 MG D1, D8 EVERY 3 WKS IV DRIP
     Route: 041
     Dates: start: 20070919, end: 20071024
  3. AMBIEN [Concomitant]
  4. ALBUTEROL [Concomitant]
  5. OXCONDONE [Concomitant]
  6. HYDORMORPHONE [Concomitant]
  7. HYZAAR [Concomitant]
  8. NORVASC [Concomitant]
  9. ZOCOR [Concomitant]
  10. LYRICA [Concomitant]

REACTIONS (4)
  - DIARRHOEA [None]
  - NAUSEA [None]
  - NEUTROPENIA [None]
  - VOMITING [None]
